FAERS Safety Report 17423014 (Version 1)
Quarter: 2020Q1

REPORT INFORMATION
  Report Type: Report from Study
  Country: None (occurrence: IT)
  Receive Date: 20200216
  Receipt Date: 20200216
  Transmission Date: 20200409
  Serious: Yes (Hospitalization)
  Sender: FDA-Public Use
  Company Number: IT-ABBVIE-20K-083-3274442-00

PATIENT
  Age: 71 Year
  Sex: Male

DRUGS (1)
  1. DUODOPA [Suspect]
     Active Substance: CARBIDOPA\LEVODOPA
     Indication: PARKINSON^S DISEASE
     Dosage: MD 5.4+3 CR 2.7(12H) ED 2
     Route: 050
     Dates: start: 20171023

REACTIONS (5)
  - Stoma site haemorrhage [Recovered/Resolved]
  - Vomiting [Recovered/Resolved]
  - Bezoar [Recovered/Resolved]
  - Complication associated with device [Recovered/Resolved]
  - Nausea [Recovered/Resolved]

NARRATIVE: CASE EVENT DATE: 201911
